FAERS Safety Report 9970302 (Version 3)
Quarter: 2014Q1

REPORT INFORMATION
  Report Type: Report from Study
  Country: AU (occurrence: AU)
  Receive Date: 20140306
  Receipt Date: 20140328
  Transmission Date: 20141002
  Serious: Yes (Other)
  Sender: FDA-Public Use
  Company Number: AU-BRISTOL-MYERS SQUIBB COMPANY-19826379

PATIENT
  Age: 50 Year
  Sex: Male

DRUGS (10)
  1. ORENCIA [Suspect]
     Indication: RHEUMATOID ARTHRITIS
     Dosage: BATCH3M55707, EXP JUL2016?4A84455-JUL2016
     Route: 042
     Dates: start: 20130712
  2. METHOTREXATE [Concomitant]
  3. FOLIC ACID [Concomitant]
  4. PREDNISONE [Concomitant]
  5. BRUFEN [Concomitant]
  6. CRESTOR [Concomitant]
  7. TRAMAL [Concomitant]
  8. VALPROATE [Concomitant]
  9. MICARDIS [Concomitant]
  10. CALTRATE [Concomitant]

REACTIONS (5)
  - Osteoporotic fracture [Unknown]
  - Costochondritis [Unknown]
  - Vomiting [Recovered/Resolved]
  - Malaise [Recovered/Resolved]
  - Gastritis [Recovering/Resolving]
